FAERS Safety Report 9199607 (Version 2)
Quarter: 2013Q2

REPORT INFORMATION
  Report Type: Spontaneous
  Country: JP (occurrence: JP)
  Receive Date: 20130329
  Receipt Date: 20130528
  Transmission Date: 20140414
  Serious: Yes (Hospitalization)
  Sender: FDA-Public Use
  Company Number: JP-TEVA-2011004299

PATIENT
  Age: 79 Year
  Sex: Male
  Weight: 49.8 kg

DRUGS (24)
  1. BENDAMUSTINE HCL [Suspect]
     Indication: MANTLE CELL LYMPHOMA
     Dosage: 90 MG/M2 DAILY;
     Route: 042
     Dates: start: 20110208, end: 20110209
  2. BENDAMUSTINE HCL [Suspect]
     Dosage: 90 MG/M2 DAILY;
     Route: 042
     Dates: start: 20110307, end: 20110308
  3. BENDAMUSTINE HCL [Suspect]
     Dosage: 90 MG/M2 DAILY;
     Route: 042
     Dates: start: 20110407, end: 20110408
  4. BENDAMUSTINE HCL [Suspect]
     Dosage: 90 MG/M2 DAILY;
     Route: 042
     Dates: start: 20110510, end: 20110511
  5. BENDAMUSTINE HCL [Suspect]
     Dosage: 90 MG/M2 DAILY;
     Route: 042
     Dates: start: 20110607, end: 20110608
  6. BENDAMUSTINE HCL [Suspect]
     Dosage: 90 MG/M2 DAILY;
     Route: 042
     Dates: start: 20110705, end: 20110706
  7. RITUXIMAB [Concomitant]
     Dates: start: 20110207, end: 20110705
  8. SULFAMETOXAZOL/TRIMETOPRIM [Concomitant]
  9. VALACICLOVIR HYDROCHLORIDE [Concomitant]
  10. ALLOPURINOL [Concomitant]
     Dates: end: 20110706
  11. POTASSIUM CITRATE W/SODIUM CITRATE [Concomitant]
     Dates: start: 20110207, end: 20110216
  12. FLUCONAZOL [Concomitant]
  13. ISONIAZID [Concomitant]
  14. PYRIDOXAL [Concomitant]
  15. ENTECAVIR [Concomitant]
  16. FAMOTIDINE [Concomitant]
  17. MOSAPRIDE CITRATE [Concomitant]
  18. BIFIDOBACTERIUM ANIMALIS [Concomitant]
  19. MAGNESIUM OXIDE [Concomitant]
  20. SODIUM PICOSULFATE [Concomitant]
  21. ACETAMINOPHEN [Concomitant]
     Dates: start: 20110207, end: 20110705
  22. OXATOMIDE [Concomitant]
     Dates: start: 20110207, end: 20110705
  23. AZASETRON HYDROCHLORIDE [Concomitant]
     Dates: start: 20110207, end: 20110706
  24. FILGRASTIM [Concomitant]
     Dates: start: 20110519, end: 20110616

REACTIONS (7)
  - Pancreatic carcinoma [Not Recovered/Not Resolved]
  - Lymphocyte count decreased [Recovering/Resolving]
  - Neutrophil count decreased [Recovering/Resolving]
  - White blood cell count decreased [Recovering/Resolving]
  - C-reactive protein increased [Recovering/Resolving]
  - Hypersensitivity [Recovered/Resolved]
  - Haemoglobin decreased [Recovering/Resolving]
